FAERS Safety Report 9937426 (Version 1)
Quarter: 2014Q1

REPORT INFORMATION
  Report Type: Report from Study
  Country: US (occurrence: US)
  Receive Date: 20140303
  Receipt Date: 20140303
  Transmission Date: 20141002
  Serious: Yes (Other)
  Sender: FDA-Public Use
  Company Number: US-ROCHE-1349209

PATIENT
  Age: 47 Year
  Sex: Female

DRUGS (17)
  1. AVASTIN [Suspect]
     Indication: BREAST CANCER
     Route: 042
     Dates: start: 20110825, end: 20120509
  2. NEUPOGEN [Suspect]
     Indication: PRODUCT USED FOR UNKNOWN INDICATION
     Dosage: 300 MCG
     Route: 065
  3. BONIVA [Suspect]
     Indication: PRODUCT USED FOR UNKNOWN INDICATION
     Route: 042
  4. XELODA [Suspect]
     Indication: PRODUCT USED FOR UNKNOWN INDICATION
     Route: 048
     Dates: start: 201003
  5. COMPAZINE [Concomitant]
  6. ADVIL [Concomitant]
  7. GEMZAR [Concomitant]
  8. MORPHINE [Concomitant]
  9. AUGMENTIN [Concomitant]
  10. DOXIL (UNITED STATES) [Concomitant]
     Route: 065
     Dates: start: 20120807
  11. ZOLPIDEM [Concomitant]
     Route: 065
  12. ZOMETA [Concomitant]
     Route: 065
     Dates: start: 20120807
  13. KYTRIL [Concomitant]
     Route: 065
     Dates: start: 20120807
  14. DECADRON [Concomitant]
     Route: 065
     Dates: start: 20120807
  15. FAMOTIDINE [Concomitant]
     Route: 065
     Dates: start: 20120807
  16. HEPARIN [Concomitant]
     Dosage: 500 UNITS
     Route: 065
  17. CARBOPLATIN [Concomitant]

REACTIONS (22)
  - Pancytopenia [Unknown]
  - Chest pain [Recovering/Resolving]
  - Nausea [Unknown]
  - Full blood count decreased [Unknown]
  - Anxiety [Unknown]
  - Headache [Recovered/Resolved]
  - Musculoskeletal stiffness [Unknown]
  - Constipation [Unknown]
  - Vomiting [Recovered/Resolved]
  - Vulvovaginal pain [Unknown]
  - Proctalgia [Unknown]
  - Dyspnoea [Unknown]
  - Skin mass [Unknown]
  - Increased tendency to bruise [Unknown]
  - Oral pain [Unknown]
  - Stress [Unknown]
  - Arthralgia [Unknown]
  - Blood calcium increased [Unknown]
  - Weight decreased [Unknown]
  - Pain in extremity [Unknown]
  - Erythema [Unknown]
  - Disease progression [Unknown]
